FAERS Safety Report 5280440-1 (Version None)
Quarter: 2007Q1

REPORT INFORMATION
  Report Type: 
  Country: None (occurrence: None)
  Receive Date: 20070329
  Receipt Date: 20070222
  Transmission Date: 20070707
  Serious: Yes (Death)
  Sender: FDA-Public Use
  Company Number: FR-AVENTIS-200710688FR

PATIENT
  Age: 71 Year
  Sex: Male
  Weight: 100 kg

DRUGS (2)
  1. LOVENOX [Suspect]
     Route: 042
     Dates: start: 20061102, end: 20061130
  2. HEPARINE CHOAY [Suspect]
     Route: 042
     Dates: start: 20061102, end: 20061130

REACTIONS (1)
  - THROMBOCYTOPENIA [None]
